FAERS Safety Report 9483738 (Version 2)
Quarter: 2013Q3

REPORT INFORMATION
  Report Type: Spontaneous
  Country: CA (occurrence: CA)
  Receive Date: 20130828
  Receipt Date: 20130828
  Transmission Date: 20140515
  Serious: Yes (Hospitalization)
  Sender: FDA-Public Use
  Company Number: CA-AMGEN-KDL276759

PATIENT
  Age: 51 Year
  Sex: Male
  Weight: 113.5 kg

DRUGS (8)
  1. ENBREL [Suspect]
     Indication: RHEUMATOID ARTHRITIS
     Dosage: UNK UNK, QWK
     Route: 065
     Dates: start: 20071211
  2. PNEUMOCOCCAL VACCINE [Concomitant]
     Dosage: UNK UNK, UNK
     Dates: start: 200803
  3. METHOTREXATE [Concomitant]
     Dosage: UNK UNK, UNK
  4. WARFARIN SODIUM [Concomitant]
     Dosage: 12.5 MG, UNK
  5. VENLAFAXINE HCL [Concomitant]
     Dosage: 37.5 MG, UNK
  6. ATORVASTATIN CALCIUM [Concomitant]
     Dosage: 10 MG, UNK
  7. DUTASTERIDE [Concomitant]
     Dosage: UNK UNK, UNK
  8. TAMSULOSIN HCL [Concomitant]
     Dosage: UNK UNK, UNK

REACTIONS (8)
  - Umbilical hernia [Unknown]
  - Abdominal infection [Recovered/Resolved]
  - Rhinorrhoea [Not Recovered/Not Resolved]
  - Productive cough [Not Recovered/Not Resolved]
  - Lower respiratory tract infection [Not Recovered/Not Resolved]
  - Lung infection [Recovering/Resolving]
  - Dyspnoea [Unknown]
  - Sinusitis [Unknown]
